FAERS Safety Report 18682667 (Version 1)
Quarter: 2020Q4

REPORT INFORMATION
  Report Type: Spontaneous
  Country: CN (occurrence: CN)
  Receive Date: 20201229
  Receipt Date: 20201229
  Transmission Date: 20210114
  Serious: Yes (Other)
  Sender: FDA-Public Use
  Company Number: CN-009507513-2012CHN010832

PATIENT
  Age: 62 Year
  Sex: Male
  Weight: 60.5 kg

DRUGS (2)
  1. TIENAM [Suspect]
     Active Substance: CILASTATIN SODIUM\IMIPENEM
     Indication: INFECTION
     Dosage: 1 GRAM, Q6H (ALSO REPORTED AS 4 TIMES A DAY (QID))
     Route: 042
     Dates: start: 20201119, end: 20201202
  2. VANCOCIN [Suspect]
     Active Substance: VANCOMYCIN HYDROCHLORIDE
     Indication: DIABETIC ULCER
     Dosage: 1 GRAM, BID
     Route: 041
     Dates: start: 20201119, end: 20201202

REACTIONS (2)
  - Hypoacusis [Recovering/Resolving]
  - Diabetic foot [Unknown]

NARRATIVE: CASE EVENT DATE: 20201201
